FAERS Safety Report 7751626-9 (Version None)
Quarter: 2011Q3

REPORT INFORMATION
  Report Type: 
  Country: None (occurrence: None)
  Receive Date: 20110914
  Receipt Date: 20110908
  Transmission Date: 20111222
  Serious: Yes (Hospitalization)
  Sender: FDA-Public Use
  Company Number: GB-PFIZER INC-2008034952

PATIENT
  Age: 16 Month
  Sex: Female

DRUGS (9)
  1. IBUPROFEN [Concomitant]
  2. ZINC [Concomitant]
  3. PHENYTOIN [Suspect]
     Indication: CONVULSION
     Dosage: 9 MG, 1X/DAY
  4. BIO-CAL [Concomitant]
  5. VITAMIN E [Concomitant]
  6. AMOXICILLIN AND CLAVULANATE POTASSIUM [Suspect]
     Dosage: UNK
     Dates: start: 19960101
  7. LAMOTRIGINE [Suspect]
     Indication: CONVULSION
  8. PENICILLIN [Suspect]
  9. MELATONIN [Concomitant]

REACTIONS (23)
  - EPISTAXIS [None]
  - DIARRHOEA [None]
  - PERIPHERAL COLDNESS [None]
  - DRUG INEFFECTIVE [None]
  - LACTOSE INTOLERANCE [None]
  - PHARYNGEAL OEDEMA [None]
  - TREMOR [None]
  - UPPER RESPIRATORY TRACT INFECTION [None]
  - AUTISM [None]
  - CANDIDIASIS [None]
  - IMPAIRED SELF-CARE [None]
  - URINARY RETENTION [None]
  - PAIN [None]
  - DRUG HYPERSENSITIVITY [None]
  - UPPER LIMB FRACTURE [None]
  - VOMITING PROJECTILE [None]
  - COGNITIVE DISORDER [None]
  - BODY TEMPERATURE DECREASED [None]
  - CRYING [None]
  - ABNORMAL FAECES [None]
  - CONVULSION [None]
  - EPILEPSY [None]
  - RASH [None]
